FAERS Safety Report 9859249 (Version 2)
Quarter: 2014Q4

REPORT INFORMATION
  Report Type: Spontaneous
  Country: US (occurrence: US)
  Receive Date: 20140131
  Receipt Date: 20141014
  Transmission Date: 20150529
  Serious: No
  Sender: FDA-Public Use
  Company Number: US-009507513-1401USA014139

PATIENT
  Sex: Female
  Weight: 111.11 kg

DRUGS (1)
  1. NUVARING [Suspect]
     Active Substance: ETHINYL ESTRADIOL\ETONOGESTREL
     Indication: MENSTRUAL DISORDER
     Route: 067

REACTIONS (11)
  - Off label use [Unknown]
  - Dyslipidaemia [Unknown]
  - Diabetes mellitus [Unknown]
  - Hypertension [Unknown]
  - Angiopathy [Unknown]
  - Thrombosis [Unknown]
  - Thrombosis [Unknown]
  - Peripheral arterial occlusive disease [Unknown]
  - Intermittent claudication [Unknown]
  - Intermittent claudication [Unknown]
  - Arterial stent insertion [Unknown]

NARRATIVE: CASE EVENT DATE: 20070901
